FAERS Safety Report 6093882-1 (Version None)
Quarter: 2009Q1

REPORT INFORMATION
  Report Type: 
  Country: None (occurrence: None)
  Receive Date: 20090224
  Receipt Date: 20090224
  Transmission Date: 20090719
  Serious: No
  Sender: FDA-Public Use
  Company Number: None

PATIENT
  Age: 70 Year
  Sex: Female
  Weight: 127.0072 kg

DRUGS (1)
  1. CATAPRES-TTS-1 [Suspect]
     Indication: HYPERTENSION
     Dosage: 1 PATCH WEEK CUTANEOUS
     Route: 003
     Dates: start: 20090201, end: 20090222

REACTIONS (2)
  - DRUG EFFECT DECREASED [None]
  - PRURITUS [None]
